FAERS Safety Report 9268028 (Version 1)
Quarter: 2013Q2

REPORT INFORMATION
  Report Type: Spontaneous
  Country: US (occurrence: US)
  Receive Date: 20130502
  Receipt Date: 20130502
  Transmission Date: 20140414
  Serious: Yes (Hospitalization)
  Sender: FDA-Public Use
  Company Number: US-ALEXION-A201201603

PATIENT
  Age: 31 Year
  Sex: Female

DRUGS (25)
  1. SOLIRIS 300MG [Suspect]
     Indication: HAEMOLYTIC URAEMIC SYNDROME
     Dosage: UNK
     Route: 042
  2. PROCRIT [Concomitant]
     Indication: ANAEMIA
     Dosage: 10000 IU, QW
  3. PROGRAF [Concomitant]
     Indication: TRANSPLANT
     Dosage: 1 MG, BID
  4. MYFORTIC [Concomitant]
     Indication: TRANSPLANT
     Dosage: 180 MG, BID
  5. RAPAMUNE [Concomitant]
     Indication: TRANSPLANT
     Dosage: 3 MG, QD
  6. PREDNISONE [Concomitant]
     Indication: TRANSPLANT
     Dosage: 5 MG, QD
  7. LABETALOL [Concomitant]
     Indication: HYPERTENSION
     Dosage: 400 MG, BID
  8. NORVASC [Concomitant]
     Indication: HYPERTENSION
     Dosage: 10 MG, QD
  9. METOLAZONE [Concomitant]
     Indication: HYPERTENSION
     Dosage: 2.5 MG, QD
  10. LASIX [Concomitant]
     Indication: HYPERTENSION
     Dosage: 80 MG, QD
  11. PRILOSEC [Concomitant]
     Dosage: 25 MG, BID
  12. CYCLOBENZAPRINE [Concomitant]
     Dosage: UNK, PRN
  13. ZOLOFT [Concomitant]
     Dosage: 50 MG, PRN
  14. TUMS [Concomitant]
     Dosage: 15 ML, TID
  15. ROCALTROL [Concomitant]
     Dosage: 0.25 ?G, QD
     Route: 048
  16. LANTHANUM CARBONATE [Concomitant]
     Dosage: 2000 MG, WITH MEALS
     Route: 048
  17. PHOSLO [Concomitant]
     Dosage: 2668 MG, WITH MEALS
     Route: 048
  18. SODIUM BICARBONATE [Concomitant]
     Dosage: 650 MG, TID
     Route: 048
  19. DOXAZOSIN [Concomitant]
     Indication: HYPERTENSION
     Dosage: 4 MG, QD
  20. AMBIEN [Concomitant]
     Dosage: 19 MG, QHS
     Route: 048
  21. HYDROCODONE BITARTRATE [Concomitant]
     Dosage: 1 TAB, Q 6 HRS
     Route: 048
  22. TRAMADOL [Concomitant]
     Dosage: 50 MG, Q6H PRN
     Route: 048
  23. CYCLOBENZAPRINE [Concomitant]
  24. ZEMPLAR [Concomitant]
     Dosage: UNK, PRN
  25. RENVELA [Concomitant]
     Dosage: UNK, PRN

REACTIONS (4)
  - Deep vein thrombosis [Unknown]
  - Pyrexia [Recovered/Resolved]
  - Red blood cell count decreased [Not Recovered/Not Resolved]
  - Haemolysis [Not Recovered/Not Resolved]
